FAERS Safety Report 8443896-9 (Version None)
Quarter: 2012Q2

REPORT INFORMATION
  Report Type: 
  Country: None (occurrence: None)
  Receive Date: 20120618
  Receipt Date: 20120608
  Transmission Date: 20120825
  Serious: Yes (Hospitalization)
  Sender: FDA-Public Use
  Company Number: US-BAYER-2012-018853

PATIENT
  Age: 20 Year
  Sex: Female
  Weight: 71 kg

DRUGS (16)
  1. YASMIN [Suspect]
     Indication: PREMENSTRUAL SYNDROME
  2. CYMBALTA [Concomitant]
     Indication: ANXIETY
  3. YASMIN [Suspect]
     Indication: MENSTRUATION IRREGULAR
  4. CYMBALTA [Concomitant]
     Indication: DEPRESSION
     Dosage: UNK
     Dates: start: 20060801, end: 20101201
  5. YAZ [Suspect]
     Indication: PREMENSTRUAL SYNDROME
  6. IBUPROFEN [Concomitant]
     Dosage: UNK
     Dates: start: 20090101, end: 20111001
  7. NAPROXEN [Concomitant]
     Dosage: UNK
     Dates: start: 20110101, end: 20111001
  8. HYDROCODONE BITARTRATE + ACETAMINOPHEN [Concomitant]
     Dosage: 500 MG, UNK
  9. NORVASC [Concomitant]
  10. YAZ [Suspect]
  11. HYDROCHLOROTHIAZIDE [Concomitant]
     Indication: HYPERTENSION
     Dosage: UNK
     Dates: start: 20090801, end: 20091101
  12. YAZ [Suspect]
     Indication: ACNE
     Dosage: UNK
     Route: 048
     Dates: start: 20060801, end: 20090801
  13. YASMIN [Suspect]
     Indication: ACNE
     Dosage: UNK
     Route: 048
     Dates: start: 20060801, end: 20090801
  14. YASMIN [Suspect]
  15. AMOXICILLIN [Concomitant]
     Dosage: 500 MG, UNK
     Dates: start: 19890401, end: 20110301
  16. YAZ [Suspect]
     Indication: MENSTRUATION IRREGULAR

REACTIONS (3)
  - BILIARY DYSKINESIA [None]
  - CHOLECYSTECTOMY [None]
  - PAIN [None]
